FAERS Safety Report 6446961-0 (Version None)
Quarter: 2009Q4

REPORT INFORMATION
  Report Type: 
  Country: None (occurrence: None)
  Receive Date: 20091119
  Receipt Date: 20091109
  Transmission Date: 20100525
  Serious: Yes (Hospitalization)
  Sender: FDA-Public Use
  Company Number: JP-ABBOTT-09P-087-0601167-00

PATIENT
  Sex: Female
  Weight: 60 kg

DRUGS (41)
  1. ZEMPLAR [Suspect]
     Indication: RENAL FAILURE CHRONIC
     Route: 042
     Dates: start: 20081216, end: 20081227
  2. ZEMPLAR [Suspect]
     Route: 042
     Dates: start: 20081230, end: 20090207
  3. ZEMPLAR [Suspect]
     Route: 042
     Dates: start: 20090210, end: 20090221
  4. ZEMPLAR [Suspect]
     Route: 042
     Dates: start: 20090224, end: 20090307
  5. ZEMPLAR [Suspect]
     Route: 042
     Dates: start: 20090310, end: 20090321
  6. ZEMPLAR [Suspect]
     Route: 042
     Dates: start: 20090324, end: 20090404
  7. ZEMPLAR [Suspect]
     Route: 042
     Dates: start: 20090407, end: 20090411
  8. ZEMPLAR [Suspect]
     Route: 042
     Dates: start: 20090414, end: 20090502
  9. ZEMPLAR [Suspect]
     Route: 042
     Dates: start: 20090505, end: 20090516
  10. ZEMPLAR [Suspect]
     Route: 042
     Dates: start: 20090519, end: 20090530
  11. ZEMPLAR [Suspect]
     Route: 042
     Dates: start: 20090602, end: 20090627
  12. ZEMPLAR [Suspect]
     Route: 042
     Dates: start: 20090630, end: 20090711
  13. ZEMPLAR [Suspect]
     Route: 042
     Dates: start: 20090714, end: 20090725
  14. ZEMPLAR [Suspect]
     Route: 042
     Dates: start: 20090728, end: 20090822
  15. ZEMPLAR [Suspect]
     Route: 042
     Dates: start: 20090825
  16. SODIUM CHLORIDE [Concomitant]
     Indication: MUSCLE SPASMS
     Dosage: 10%
     Route: 042
     Dates: start: 20051117
  17. SODIUM CHLORIDE [Concomitant]
     Indication: DIALYSIS
  18. EFFORTIL [Concomitant]
     Indication: PROCEDURAL HYPOTENSION
     Route: 042
     Dates: start: 20060531
  19. PLETAL [Concomitant]
     Indication: ARTERIOSCLEROSIS OBLITERANS
     Route: 048
     Dates: start: 20080815
  20. BANAN [Concomitant]
     Indication: LOCALISED INFECTION
     Route: 048
     Dates: start: 20090811, end: 20090815
  21. PANSPORIN T [Concomitant]
     Indication: LOCALISED INFECTION
     Route: 048
     Dates: start: 20090813, end: 20090817
  22. BLOPRESS [Concomitant]
     Indication: HYPERTENSION
     Route: 048
     Dates: start: 20090715
  23. EPOGIN [Concomitant]
     Indication: NEPHROGENIC ANAEMIA
     Route: 042
     Dates: start: 20081216, end: 20090317
  24. EPOGIN [Concomitant]
     Route: 042
     Dates: start: 20090321, end: 20090409
  25. EPOGIN [Concomitant]
     Route: 042
     Dates: start: 20090411, end: 20090507
  26. EPOGIN [Concomitant]
     Route: 042
     Dates: start: 20090509, end: 20090602
  27. EPOGIN [Concomitant]
     Route: 042
     Dates: start: 20090609, end: 20090707
  28. EPOGIN [Concomitant]
     Route: 042
     Dates: start: 20090801, end: 20090903
  29. EPOGIN [Concomitant]
     Route: 042
     Dates: start: 20090905
  30. SODIUM CHLORIDE [Concomitant]
     Indication: PROCEDURAL HYPOTENSION
     Dosage: 100 TO 300 ML
     Route: 042
     Dates: start: 20090307
  31. GENTAMICIN [Concomitant]
     Indication: ULCER
     Dosage: ENDEMIC
     Dates: start: 20080703
  32. GENTAMICIN [Concomitant]
     Indication: ARTERIOSCLEROSIS OBLITERANS
  33. NOVOLIN R [Concomitant]
     Indication: DIABETES MELLITUS
     Dosage: 12 TO 26 UNITS
     Route: 058
     Dates: start: 20080801
  34. NOVOLIN R [Concomitant]
     Dosage: 14 TO 30 UNITS
     Route: 058
     Dates: start: 20080731
  35. METHYL SALICYLATE/DI-CAMPHOR-MENTHOL [Concomitant]
     Indication: ARTHRALGIA
     Dosage: ENDEMIC
     Dates: start: 20051218
  36. VOLTAREN [Concomitant]
     Indication: ARTHRALGIA
     Dosage: ENDEMIC
     Dates: start: 20090711
  37. GLUCOSE 50% BAXTER [Concomitant]
     Indication: HYPOGLYCAEMIA
     Dosage: 20 TO 40 ML
     Route: 042
     Dates: start: 20090219
  38. GLUCOSE 50% BAXTER [Concomitant]
     Indication: DIALYSIS
  39. RISUMIC [Concomitant]
     Indication: HYPOTENSION
     Dates: start: 20081023
  40. RISUMIC [Concomitant]
     Indication: DIALYSIS
  41. LIPITOR [Concomitant]
     Indication: HYPERLIPIDAEMIA
     Route: 048
     Dates: start: 20080815

REACTIONS (1)
  - ARTERIOSCLEROSIS OBLITERANS [None]
